FAERS Safety Report 13563201 (Version 2)
Quarter: 2017Q2

REPORT INFORMATION
  Report Type: Spontaneous
  Country: US (occurrence: US)
  Receive Date: 20170519
  Receipt Date: 20170522
  Transmission Date: 20170830
  Serious: No
  Sender: FDA-Public Use
  Company Number: US-LEO PHARMA-301812

PATIENT
  Age: 48 Year
  Sex: Female
  Weight: 56.69 kg

DRUGS (3)
  1. PROTOPIC [Suspect]
     Active Substance: TACROLIMUS
     Indication: ECZEMA
     Route: 061
     Dates: start: 201703, end: 20170507
  2. FLONASE [Concomitant]
     Active Substance: FLUTICASONE PROPIONATE
     Indication: PRODUCT USED FOR UNKNOWN INDICATION
     Dates: start: 2016
  3. ZYRTEC [Concomitant]
     Active Substance: CETIRIZINE HYDROCHLORIDE
     Indication: PRODUCT USED FOR UNKNOWN INDICATION
     Dates: start: 2016

REACTIONS (15)
  - Application site rash [Recovered/Resolved]
  - Application site pruritus [Not Recovered/Not Resolved]
  - Myalgia [Not Recovered/Not Resolved]
  - Malaise [Not Recovered/Not Resolved]
  - Application site rash [Not Recovered/Not Resolved]
  - Application site vesicles [Not Recovered/Not Resolved]
  - Headache [Not Recovered/Not Resolved]
  - Application site papules [Not Recovered/Not Resolved]
  - Pyrexia [Not Recovered/Not Resolved]
  - Accidental exposure to product [Unknown]
  - Hot flush [Not Recovered/Not Resolved]
  - Application site pain [Not Recovered/Not Resolved]
  - Nausea [Not Recovered/Not Resolved]
  - Burning sensation [Not Recovered/Not Resolved]
  - Application site warmth [Not Recovered/Not Resolved]

NARRATIVE: CASE EVENT DATE: 201703
